FAERS Safety Report 13515630 (Version 1)
Quarter: 2017Q2

REPORT INFORMATION
  Report Type: Spontaneous
  Country: US (occurrence: US)
  Receive Date: 20170504
  Receipt Date: 20170504
  Transmission Date: 20170830
  Serious: No
  Sender: FDA-Public Use
  Company Number: US-BAXALTA-2017BLT002640

PATIENT
  Age: 38 Year
  Sex: Female

DRUGS (1)
  1. HYQVIA [Suspect]
     Active Substance: HUMAN IMMUNOGLOBULIN G\HYALURONIDASE RECOMBINANT HUMAN
     Indication: HYPOGAMMAGLOBULINAEMIA
     Dosage: 30 G, UNK
     Route: 065
     Dates: start: 20170323, end: 20170323

REACTIONS (2)
  - Infusion site pruritus [Recovered/Resolved]
  - Infusion site erythema [Recovered/Resolved]

NARRATIVE: CASE EVENT DATE: 20170323
